FAERS Safety Report 6771081-5 (Version None)
Quarter: 2010Q2

REPORT INFORMATION
  Report Type: 
  Country: None (occurrence: None)
  Receive Date: 20100616
  Receipt Date: 20100607
  Transmission Date: 20101027
  Serious: Yes (Hospitalization, Other)
  Sender: FDA-Public Use
  Company Number: DE-JNJFOC-20100603078

PATIENT
  Age: 54 Year
  Sex: Male
  Weight: 88 kg

DRUGS (29)
  1. HALDOL [Suspect]
     Indication: DRUG USE FOR UNKNOWN INDICATION
     Route: 048
  2. HALDOL [Suspect]
     Route: 048
  3. HALDOL [Suspect]
     Route: 048
  4. HALDOL [Suspect]
     Route: 048
  5. LEPONEX [Suspect]
     Indication: DRUG USE FOR UNKNOWN INDICATION
     Route: 048
  6. LEPONEX [Suspect]
     Route: 048
  7. LEPONEX [Suspect]
     Route: 048
  8. LEPONEX [Suspect]
     Route: 048
  9. LEPONEX [Suspect]
     Route: 048
  10. LEPONEX [Suspect]
     Route: 048
  11. LEPONEX [Suspect]
     Route: 048
  12. LEPONEX [Suspect]
     Route: 048
  13. LEPONEX [Suspect]
     Route: 048
  14. LEPONEX [Suspect]
     Route: 048
  15. LEPONEX [Suspect]
     Route: 048
  16. VALPROATE SODIUM [Suspect]
     Indication: DRUG USE FOR UNKNOWN INDICATION
     Route: 048
  17. VALPROATE SODIUM [Suspect]
     Route: 048
  18. VALPROATE SODIUM [Suspect]
     Route: 048
  19. VALPROATE SODIUM [Suspect]
     Route: 048
  20. VALPROATE SODIUM [Suspect]
     Route: 048
  21. LORAZEPAM [Concomitant]
     Route: 048
  22. LORAZEPAM [Concomitant]
     Route: 048
  23. LORAZEPAM [Concomitant]
     Route: 048
  24. LORAZEPAM [Concomitant]
     Route: 048
  25. LORAZEPAM [Concomitant]
     Route: 048
  26. LORAZEPAM [Concomitant]
     Route: 048
  27. LORAZEPAM [Concomitant]
     Route: 048
  28. AKINETON [Concomitant]
     Route: 048
  29. AKINETON [Concomitant]
     Route: 048

REACTIONS (6)
  - AGRANULOCYTOSIS [None]
  - DYSPNOEA [None]
  - PSYCHOMOTOR SKILLS IMPAIRED [None]
  - SLUGGISHNESS [None]
  - STRESS [None]
  - WEIGHT INCREASED [None]
